FAERS Safety Report 16955173 (Version 9)
Quarter: 2021Q1

REPORT INFORMATION
  Report Type: Spontaneous
  Country: JP (occurrence: JP)
  Receive Date: 20191024
  Receipt Date: 20210309
  Transmission Date: 20210419
  Serious: Yes (Death, Life-Threatening, Hospitalization, Other)
  Sender: FDA-Public Use
  Company Number: JP-009507513-1909JPN001572J

PATIENT
  Age: 74 Year
  Sex: Female
  Weight: 47 kg

DRUGS (8)
  1. ABRAXANE [Suspect]
     Active Substance: PACLITAXEL
     Dosage: 146 MILLIGRAM, QW
     Route: 041
     Dates: start: 20190828, end: 20190828
  2. CARBOPLATIN. [Suspect]
     Active Substance: CARBOPLATIN
     Indication: LUNG SQUAMOUS CELL CARCINOMA STAGE IV
     Dosage: 492 MILLIGRAM, Q3W
     Route: 041
     Dates: start: 20190719, end: 20190719
  3. AMLODIPINE [Concomitant]
     Active Substance: AMLODIPINE BESYLATE
     Dosage: 5MG,UNK
     Route: 048
     Dates: end: 20190828
  4. KEYTRUDA [Suspect]
     Active Substance: PEMBROLIZUMAB
     Indication: LUNG SQUAMOUS CELL CARCINOMA STAGE IV
     Dosage: 200 MILLIGRAM, Q3W
     Route: 041
     Dates: start: 20190719, end: 20190719
  5. EBRANTIL [Concomitant]
     Active Substance: URAPIDIL
     Indication: NEUROGENIC BLADDER
     Dosage: 30 MILLIGRAM, BID
     Route: 048
     Dates: start: 20190719, end: 20190907
  6. SODIUM CHLORIDE. [Concomitant]
     Active Substance: SODIUM CHLORIDE
     Dosage: UNK
     Route: 065
     Dates: end: 20190821
  7. ABRAXANE [Suspect]
     Active Substance: PACLITAXEL
     Indication: LUNG SQUAMOUS CELL CARCINOMA STAGE IV
     Dosage: 153 MILLIGRAM, QW
     Route: 041
     Dates: start: 20190719, end: 20190801
  8. CARBOPLATIN. [Suspect]
     Active Substance: CARBOPLATIN
     Dosage: 519 MILLIGRAM, Q3W
     Route: 041
     Dates: start: 20190828, end: 20190828

REACTIONS (7)
  - Constipation [Recovered/Resolved]
  - Depression [Recovering/Resolving]
  - Immune-mediated enterocolitis [Fatal]
  - Pneumonia [Not Recovered/Not Resolved]
  - Shock symptom [Fatal]
  - Autoimmune hypothyroidism [Recovering/Resolving]
  - Sepsis [Fatal]

NARRATIVE: CASE EVENT DATE: 20190719
